FAERS Safety Report 6041488-2 (Version None)
Quarter: 2009Q1

REPORT INFORMATION
  Report Type: 
  Country: None (occurrence: None)
  Receive Date: 20090116
  Receipt Date: 20090108
  Transmission Date: 20090719
  Serious: Yes (Hospitalization, Other)
  Sender: FDA-Public Use
  Company Number: FR-ELI_LILLY_AND_COMPANY-FR200901000961

PATIENT
  Sex: Female

DRUGS (9)
  1. HUMALOG [Suspect]
     Indication: DIABETES MELLITUS
     Route: 058
  2. COTAREG [Concomitant]
     Indication: HYPERTENSION
     Dosage: 1 D/F, DAILY (1/D)
     Route: 048
     Dates: end: 20080829
  3. KARDEGIC [Concomitant]
     Dates: start: 20080101
  4. TIAPRIDAL [Concomitant]
  5. ALDACTONE [Concomitant]
     Indication: HYPERTENSION
     Dosage: 50 MG, DAILY (1/D)
     Route: 048
     Dates: end: 20080829
  6. ACETAMINOPHEN [Concomitant]
     Dosage: UNK, UNK
     Dates: start: 20080101
  7. LEVEMIR [Concomitant]
     Indication: DIABETES MELLITUS
     Dosage: 18 IU, 2/D
     Route: 058
  8. ISOPTIN [Concomitant]
     Dosage: UNK, UNK
     Dates: start: 20080101
  9. NSAID'S [Concomitant]
     Indication: OSTEOARTHRITIS
     Dosage: UNK, AS NEEDED
     Dates: end: 20080829

REACTIONS (4)
  - DEHYDRATION [None]
  - HYPERKALAEMIA [None]
  - PYREXIA [None]
  - RENAL FAILURE ACUTE [None]
